FAERS Safety Report 18150250 (Version 1)
Quarter: 2020Q3

REPORT INFORMATION
  Report Type: Report from Study
  Country: None (occurrence: US)
  Receive Date: 20200814
  Receipt Date: 20200814
  Transmission Date: 20201103
  Serious: Yes (Hospitalization, Other)
  Sender: FDA-Public Use
  Company Number: US-ABBVIE-20K-163-3522480-00

PATIENT
  Sex: Female

DRUGS (1)
  1. HUMIRA [Suspect]
     Active Substance: ADALIMUMAB
     Indication: PRODUCT USED FOR UNKNOWN INDICATION
     Dosage: CITRATE FREE, OTHER
     Route: 058
     Dates: start: 202005, end: 20200708

REACTIONS (4)
  - Diverticulitis [Unknown]
  - Hip surgery [Unknown]
  - Colonic abscess [Unknown]
  - Arthralgia [Recovered/Resolved]
